FAERS Safety Report 4602835-9 (Version None)
Quarter: 2005Q1

REPORT INFORMATION
  Report Type: 
  Country: None (occurrence: None)
  Receive Date: 20050307
  Receipt Date: 20050126
  Transmission Date: 20050727
  Serious: Yes (Life-Threatening, Hospitalization)
  Sender: FDA-Public Use
  Company Number: 805#1#2005-00002

PATIENT
  Age: 59 Year
  Sex: Female

DRUGS (6)
  1. ALPROSTADIL [Suspect]
     Indication: LUMBAR SPINAL STENOSIS
     Dosage: 1.80 MG (40MCG 2 IN 1 DAY(S), INTRVENOUS DRIP
     Route: 041
     Dates: start: 20041004, end: 20041008
  2. ESTRACT-FROM-INFLAMMATORY-RABBIT-SKIN-INOCULATED-BY-VACCINIA-VIRUS(ORG [Suspect]
     Dosage: 7.2 DF, INTRAVENOUS DRIP
     Route: 041
     Dates: start: 20041004, end: 20041008
  3. LIMAPROST-ALFADEX (LIMAPROST) [Concomitant]
  4. LOXOPROFEN-SODIUM (LOXOPROFEN SODIUM) [Concomitant]
  5. TEPRENONE (TEPRENONE) [Concomitant]
  6. HEPARIN SODIUM [Concomitant]

REACTIONS (10)
  - BLOOD PRESSURE INCREASED [None]
  - CYSTITIS [None]
  - FEELING ABNORMAL [None]
  - HAEMATURIA [None]
  - HEPATIC FAILURE [None]
  - HYPOALBUMINAEMIA [None]
  - PLATELET COUNT DECREASED [None]
  - RENAL FAILURE [None]
  - RENAL IMPAIRMENT [None]
  - URINARY TRACT INFECTION [None]
